FAERS Safety Report 6439609 (Version 8)
Quarter: 2012Q4

REPORT INFORMATION
  Report Type: 
  Country: US (occurrence: US)
  Receive Date: 20071011
  Receipt Date: 20121228
  Transmission Date: 20130627
  Serious: Yes (Death)
  Sender: FDA-Public Use
  Company Number: US-JNJFOC-20071001791

PATIENT
  Age: 0 None
  Sex: Female
  Weight: 7.71 kg

DRUGS (8)
  1. CONCENTRATED INFANTS TYLENOL PLUS COLD [Suspect]
     Indication: PYREXIA
     Dates: start: 20051213, end: 20051214
  2. CONCENTRATED INFANTS TYLENOL PLUS COLD [Suspect]
     Indication: BRONCHOPNEUMONIA
     Dates: start: 20051213, end: 20051214
  3. CARBAXEFED DM [Suspect]
     Indication: PYREXIA
     Dates: start: 20051213, end: 20051214
  4. CARBAXEFED DM [Suspect]
     Indication: BRONCHOPNEUMONIA
     Dates: start: 20051213, end: 20051214
  5. AMOXICILLIN [Suspect]
     Indication: BRONCHOPNEUMONIA
     Dosage: q 3 hours
  6. TYLENOL [Concomitant]
  7. MOTRIN [Concomitant]
  8. PEDIALYTE [Concomitant]

REACTIONS (5)
  - Accidental overdose [Fatal]
  - Drug administration error [Fatal]
  - Toxicity to various agents [Fatal]
  - Listless [Fatal]
  - Screaming [Fatal]
